FAERS Safety Report 10649641 (Version 1)
Quarter: 2014Q4

REPORT INFORMATION
  Report Type: Spontaneous
  Country: US (occurrence: US)
  Receive Date: 20141212
  Receipt Date: 20141212
  Transmission Date: 20150529
  Serious: No
  Sender: FDA-Public Use
  Company Number: US-SHIRE-US201408236

PATIENT
  Age: 18 Year
  Weight: 61.22 kg

DRUGS (1)
  1. VYVANSE [Suspect]
     Active Substance: LISDEXAMFETAMINE DIMESYLATE
     Indication: ATTENTION DEFICIT/HYPERACTIVITY DISORDER
     Dosage: 40 MG, 1X/DAY:QD
     Route: 048

REACTIONS (6)
  - Visual impairment [Unknown]
  - Irritability [Unknown]
  - Drug effect decreased [Unknown]
  - Drug tolerance [Unknown]
  - Disturbance in attention [Unknown]
  - Anger [Unknown]
